FAERS Safety Report 17043458 (Version 1)
Quarter: 2019Q4

REPORT INFORMATION
  Report Type: Spontaneous
  Country: US (occurrence: US)
  Receive Date: 20191017
  Receipt Date: 20191017
  Transmission Date: 20200122
  Serious: No
  Sender: FDA-Public Use
  Company Number: None

PATIENT
  Age: 49 Year
  Sex: Male

DRUGS (1)
  1. COPAXONE [Suspect]
     Active Substance: GLATIRAMER ACETATE
     Route: 058
     Dates: start: 20190911

REACTIONS (8)
  - Multiple sclerosis relapse [None]
  - Therapy cessation [None]
  - Product storage error [None]
  - Confusional state [None]
  - Erythema [None]
  - Blood pressure increased [None]
  - Visual impairment [None]
  - Chest pain [None]

NARRATIVE: CASE EVENT DATE: 20191003
